FAERS Safety Report 5917493-0 (Version None)
Quarter: 2008Q4

REPORT INFORMATION
  Report Type: 
  Country: None (occurrence: None)
  Receive Date: 20081010
  Receipt Date: 20081010
  Transmission Date: 20090506
  Serious: Yes (Other)
  Sender: FDA-Public Use
  Company Number: None

PATIENT
  Age: 9 Year
  Sex: Female
  Weight: 27.2158 kg

DRUGS (1)
  1. LANTUS [Suspect]
     Indication: TYPE 1 DIABETES MELLITUS
     Dosage: 20 UNITS QHS SQ
     Route: 058

REACTIONS (4)
  - DYSPNOEA [None]
  - LIP SWELLING [None]
  - OROPHARYNGEAL PAIN [None]
  - WHEEZING [None]
